FAERS Safety Report 4372715-5 (Version None)
Quarter: 2004Q2

REPORT INFORMATION
  Report Type: 
  Country: None (occurrence: None)
  Receive Date: 20040603
  Receipt Date: 20040506
  Transmission Date: 20050107
  Serious: No
  Sender: FDA-Public Use
  Company Number: A02200401616

PATIENT
  Age: 33 Year

DRUGS (2)
  1. STILNOX (ZOLPIDEM) TABLET 10 MG [Suspect]
     Route: 048
     Dates: start: 20040428
  2. ALCOHOL [Concomitant]

REACTIONS (2)
  - ALCOHOL USE [None]
  - VICTIM OF SEXUAL ABUSE [None]
